FAERS Safety Report 5188213-5 (Version None)
Quarter: 2006Q4

REPORT INFORMATION
  Report Type: 
  Country: None (occurrence: None)
  Receive Date: 20061214
  Receipt Date: 20061207
  Transmission Date: 20070319
  Serious: Yes (Disabling)
  Sender: FDA-Public Use
  Company Number: HQWYE929411OCT06

PATIENT
  Age: 65 Year
  Sex: Female

DRUGS (1)
  1. AMIODARONE HCL [Suspect]
     Dosage: 200 MG TABLET
     Route: 048

REACTIONS (3)
  - OPTIC ATROPHY [None]
  - OPTIC NEURITIS [None]
  - VISUAL FIELD DEFECT [None]
